FAERS Safety Report 5307697-2 (Version None)
Quarter: 2007Q2

REPORT INFORMATION
  Report Type: 
  Country: None (occurrence: None)
  Receive Date: 20070425
  Receipt Date: 20060818
  Transmission Date: 20071010
  Serious: Yes (Other)
  Sender: FDA-Public Use
  Company Number: SE-PFIZER INC-2005118828

PATIENT
  Sex: Female

DRUGS (1)
  1. BEXTRA [Suspect]
     Indication: HYSTERECTOMY
     Route: 048

REACTIONS (2)
  - MUSCLE SPASMS [None]
  - MUSCLE SPASTICITY [None]
